FAERS Safety Report 6164135-8 (Version None)
Quarter: 2009Q2

REPORT INFORMATION
  Report Type: 
  Country: None (occurrence: None)
  Receive Date: 20090422
  Receipt Date: 20090420
  Transmission Date: 20091009
  Serious: Yes (Death, Hospitalization, Other)
  Sender: FDA-Public Use
  Company Number: PHHY2009NO14727

PATIENT
  Age: 8 Year
  Sex: Male

DRUGS (1)
  1. RITALIN [Suspect]
     Indication: ATTENTION DEFICIT/HYPERACTIVITY DISORDER
     Dosage: UNK
     Dates: start: 20040101, end: 20050101

REACTIONS (20)
  - AGGRESSION [None]
  - ASTHENIA [None]
  - BRAIN INJURY [None]
  - CONTUSION [None]
  - CONVULSION [None]
  - DIZZINESS [None]
  - DYSKINESIA [None]
  - DYSSTASIA [None]
  - FALL [None]
  - FEELING ABNORMAL [None]
  - OVERDOSE [None]
  - PAIN IN EXTREMITY [None]
  - RASH MACULAR [None]
  - SCREAMING [None]
  - SELF INJURIOUS BEHAVIOUR [None]
  - SKULL FRACTURE [None]
  - SWELLING [None]
  - THERMAL BURN [None]
  - VOMITING [None]
  - WOUND [None]
